FAERS Safety Report 16148209 (Version 1)
Quarter: 2019Q2

REPORT INFORMATION
  Report Type: Spontaneous
  Country: FR (occurrence: FR)
  Receive Date: 20190402
  Receipt Date: 20190402
  Transmission Date: 20190711
  Serious: Yes (Hospitalization)
  Sender: FDA-Public Use
  Company Number: FR-PFIZER INC-2019134783

PATIENT
  Age: 42 Year
  Sex: Female
  Weight: 56 kg

DRUGS (2)
  1. AMOXICILLINE PANPHARMA [Suspect]
     Active Substance: AMOXICILLIN
     Indication: LUNG DISORDER
     Dosage: 3 G, 1X/DAY
     Route: 048
     Dates: start: 20181221, end: 20181225
  2. IBUPROFEN. [Suspect]
     Active Substance: IBUPROFEN
     Indication: LUNG DISORDER
     Dosage: 800 MG, 1X/DAY
     Route: 048
     Dates: start: 20181221, end: 20181223

REACTIONS (1)
  - Meningitis aseptic [Recovered/Resolved]

NARRATIVE: CASE EVENT DATE: 20181225
